FAERS Safety Report 9699692 (Version 2)
Quarter: 2013Q4

REPORT INFORMATION
  Report Type: Spontaneous
  Country: US (occurrence: US)
  Receive Date: 20131120
  Receipt Date: 20131125
  Transmission Date: 20140711
  Serious: No
  Sender: FDA-Public Use
  Company Number: US-TEVA-372466USA

PATIENT
  Age: 42 Year
  Sex: Female
  Weight: 74 kg

DRUGS (5)
  1. PARAGARD 380A [Suspect]
     Indication: CONTRACEPTION
     Route: 015
     Dates: start: 20120212, end: 20121026
  2. AMBIEN [Concomitant]
     Indication: INSOMNIA
     Dosage: 10 MILLIGRAM DAILY;
     Route: 048
  3. XANAX [Concomitant]
     Dosage: 3 MILLIGRAM DAILY;
  4. WELLBUTRIN    XL [Concomitant]
  5. TOPROL [Concomitant]

REACTIONS (3)
  - Uterine spasm [Not Recovered/Not Resolved]
  - Vaginal haemorrhage [Not Recovered/Not Resolved]
  - Device expulsion [Not Recovered/Not Resolved]
